FAERS Safety Report 9277241 (Version 3)
Quarter: 2013Q3

REPORT INFORMATION
  Report Type: Spontaneous
  Country: US (occurrence: US)
  Receive Date: 20130508
  Receipt Date: 20130710
  Transmission Date: 20140515
  Serious: No
  Sender: FDA-Public Use
  Company Number: US-009507513-1305USA002697

PATIENT
  Age: 55 Year
  Sex: Female

DRUGS (2)
  1. PEG-INTRON [Suspect]
     Indication: HEPATITIS C
     Dosage: REDIPEN
     Dates: start: 20130502
  2. REBETOL [Suspect]
     Indication: HEPATITIS C
     Dosage: UNK
     Route: 048
     Dates: start: 20130502

REACTIONS (11)
  - Skin disorder [Unknown]
  - Thirst [Unknown]
  - Pollakiuria [Unknown]
  - Pollakiuria [Unknown]
  - Chills [Unknown]
  - Dyspnoea [Unknown]
  - Abdominal pain [Unknown]
  - Dry skin [Unknown]
  - Pruritus [Unknown]
  - Dry skin [Unknown]
  - Pruritus [Unknown]
